FAERS Safety Report 4284703-8 (Version None)
Quarter: 2004Q1

REPORT INFORMATION
  Report Type: 
  Country: None (occurrence: None)
  Receive Date: 20040130
  Receipt Date: 20040116
  Transmission Date: 20041129
  Serious: Yes (Death, Life-Threatening)
  Sender: FDA-Public Use
  Company Number: JP-JNJFOC-20040102291

PATIENT
  Age: 59 Year
  Sex: Female

DRUGS (11)
  1. LEVOFLOXACIN [Suspect]
     Indication: CYSTITIS
     Dosage: 100 MG, 2 IN 1 DAY, ORAL
     Route: 048
     Dates: start: 20031226, end: 20040105
  2. FEMAS (FERROUS SULFATE) TABLETS [Suspect]
     Indication: DRUG USE FOR UNKNOWN INDICATION
     Dosage: 1 DOSE(S), ORAL
     Route: 048
     Dates: start: 20031226, end: 20040106
  3. PREDNISOLONE [Concomitant]
  4. BUCILLAMINE (BUCILLAMINE) [Concomitant]
  5. MECOBALAMIN (MECOBALAMIN) [Concomitant]
  6. CONIEL (BENIDIPINE HYDROCHLORIDE) [Concomitant]
  7. MS CONTIN [Concomitant]
  8. LORFENAMIN (LOXOPROFEN SODIUM) [Concomitant]
  9. OMEPRAZOLE [Concomitant]
  10. DOGMATYL (SULPIRIDE) [Concomitant]
  11. MUCOSTA (REBAMIPIDE) [Concomitant]

REACTIONS (4)
  - CEREBRAL HAEMORRHAGE [None]
  - COMA [None]
  - DYSPNOEA [None]
  - PLATELET COUNT DECREASED [None]
